FAERS Safety Report 7307904-0 (Version None)
Quarter: 2011Q1

REPORT INFORMATION
  Report Type: 
  Country: None (occurrence: None)
  Receive Date: 20110223
  Receipt Date: 20110211
  Transmission Date: 20110831
  Serious: Yes (Other)
  Sender: FDA-Public Use
  Company Number: US-SANOFI-AVENTIS-2011SA009329

PATIENT

DRUGS (2)
  1. CAPECITABINE [Suspect]
     Indication: RECTAL CANCER
  2. OXALIPLATIN [Suspect]
     Indication: RECTAL CANCER
     Dosage: D1, 8, 22, AND 29

REACTIONS (5)
  - BLOOD DISORDER [None]
  - SKIN DISORDER [None]
  - PAIN [None]
  - METABOLIC DISORDER [None]
  - GASTROINTESTINAL DISORDER [None]
